FAERS Safety Report 5895525-6 (Version None)
Quarter: 2008Q3

REPORT INFORMATION
  Report Type: 
  Country: None (occurrence: None)
  Receive Date: 20080924
  Receipt Date: 20080922
  Transmission Date: 20090109
  Serious: Yes (Life-Threatening, Hospitalization)
  Sender: FDA-Public Use
  Company Number: GB-WYE-G02160608

PATIENT
  Sex: Female

DRUGS (3)
  1. GEMTUZUMAB OZOGAMICIN [Suspect]
     Dosage: UNKNOWN
     Dates: start: 20080905
  2. ARA-C [Suspect]
     Dosage: UNKNOWN
     Dates: start: 20080905
  3. DAUNORUBICIN HCL [Suspect]
     Dosage: UNKNOWN
     Dates: start: 20080905

REACTIONS (2)
  - CARDIAC FAILURE [None]
  - SEPSIS [None]
